FAERS Safety Report 9515901 (Version 1)
Quarter: 2013Q3

REPORT INFORMATION
  Report Type: Spontaneous
  Country: NZ (occurrence: None)
  Receive Date: 20130909
  Receipt Date: 20130909
  Transmission Date: 20140515
  Serious: Yes (Hospitalization)
  Sender: FDA-Public Use
  Company Number: NZ-ALKEM-000128

PATIENT
  Age: 51 Year
  Sex: Female

DRUGS (2)
  1. QUETIAPINE [Suspect]
  2. CITALOPRAM [Suspect]

REACTIONS (9)
  - Intentional overdose [None]
  - Suicide attempt [None]
  - Fall [None]
  - Hypothermia [None]
  - Electrocardiogram abnormal [None]
  - Hypoaesthesia [None]
  - Pneumonia aspiration [None]
  - Unresponsive to stimuli [None]
  - Alcohol use [None]
